FAERS Safety Report 20595060 (Version 1)
Quarter: 2022Q1

REPORT INFORMATION
  Report Type: Report from Study
  Country: IT (occurrence: IT)
  Receive Date: 20220315
  Receipt Date: 20220315
  Transmission Date: 20220423
  Serious: Yes (Hospitalization)
  Sender: FDA-Public Use
  Company Number: None

PATIENT
  Age: 82 Year
  Sex: Female

DRUGS (5)
  1. OLMESARTAN MEDOXOMIL [Suspect]
     Active Substance: OLMESARTAN MEDOXOMIL
     Indication: Hypertension
     Dosage: UNIT DOSE: 1 DOSAGE FORM
     Route: 048
  2. ASPIRIN [Concomitant]
     Active Substance: ASPIRIN
     Indication: Hypertensive heart disease
     Dosage: UNIT DOSE: 100 MG
     Route: 048
  3. MEMANTINE HYDROCHLORIDE [Concomitant]
     Active Substance: MEMANTINE HYDROCHLORIDE
     Indication: Dementia Alzheimer^s type
     Dosage: UNIT DOSE: 20 MG
     Route: 048
  4. BISOPROLOL [Concomitant]
     Active Substance: BISOPROLOL
     Indication: Hypertension
     Dosage: UNIT DOSE: 1.25 MG
     Route: 048
  5. AMLODIPINE [Concomitant]
     Active Substance: AMLODIPINE BESYLATE
     Indication: Hypertension
     Dosage: UNIT DOSE: 10 MG
     Route: 048

REACTIONS (6)
  - Moaning [Recovered/Resolved]
  - Diarrhoea [Recovered/Resolved]
  - Dyspnoea [Recovered/Resolved]
  - Metabolic acidosis [Recovered/Resolved]
  - Hypokalaemia [Recovered/Resolved]
  - Enterocolitis [Recovered/Resolved]

NARRATIVE: CASE EVENT DATE: 20211122
